FAERS Safety Report 5678391-3 (Version None)
Quarter: 2008Q1

REPORT INFORMATION
  Report Type: 
  Country: None (occurrence: None)
  Receive Date: 20080320
  Receipt Date: 20080310
  Transmission Date: 20080703
  Serious: No
  Sender: FDA-Public Use
  Company Number: 2008SP004012

PATIENT
  Age: 58 Year
  Sex: Male
  Weight: 90.7194 kg

DRUGS (4)
  1. CLARITIN [Suspect]
     Indication: RHINORRHOEA
     Dosage: 1 DF; QD; PO
     Route: 048
     Dates: start: 20080218, end: 20080220
  2. ASPIRIN (CON.) [Concomitant]
  3. BACLOFEN (CON.) [Concomitant]
  4. LISINOPRIL (CON.) [Concomitant]

REACTIONS (2)
  - CHEST DISCOMFORT [None]
  - DYSPNOEA [None]
